FAERS Safety Report 19196714 (Version 1)
Quarter: 2021Q2

REPORT INFORMATION
  Report Type: Spontaneous
  Country: US (occurrence: US)
  Receive Date: 20210430
  Receipt Date: 20210430
  Transmission Date: 20210717
  Serious: No
  Sender: FDA-Public Use
  Company Number: US-AMGEN-USASP2021064371

PATIENT
  Age: 66 Year
  Sex: Female

DRUGS (11)
  1. FLUOCINONIDE. [Concomitant]
     Active Substance: FLUOCINONIDE
     Dosage: UNK UNK, BID/AS NEEDED
  2. CLARITIN [Concomitant]
     Active Substance: LORATADINE
     Dosage: UNK UNK, QD
  3. PROLIA [Suspect]
     Active Substance: DENOSUMAB
     Indication: PRODUCT USED FOR UNKNOWN INDICATION
     Dosage: UNK
     Route: 065
  4. CLOBETASOL [Concomitant]
     Active Substance: CLOBETASOL
     Dosage: UNK UNK, BID/ON SCALP TWICE DAILY FOR 2 WEEKS
  5. TRIAMCINOLONE [Concomitant]
     Active Substance: TRIAMCINOLONE
     Dosage: UNK UNK, BID/AS NEEDED
  6. ZYRTEC [Concomitant]
     Active Substance: CETIRIZINE HYDROCHLORIDE
     Dosage: UNK
  7. TACROLIMUS. [Concomitant]
     Active Substance: TACROLIMUS
     Dosage: UNK UNK, BID
  8. XANAX [Concomitant]
     Active Substance: ALPRAZOLAM
     Dosage: UNK UNK, AS NECESSARY/NIGHTLY AS NEEDED
  9. PEPCID [Concomitant]
     Active Substance: FAMOTIDINE
     Dosage: UNK UNK, QD
  10. ALLEGRA [Concomitant]
     Active Substance: FEXOFENADINE HYDROCHLORIDE
     Dosage: UNK UNK, BID
  11. HYDROXYZINE [Concomitant]
     Active Substance: HYDROXYZINE HYDROCHLORIDE
     Dosage: UNK UNK, BID

REACTIONS (1)
  - Rash [Not Recovered/Not Resolved]

NARRATIVE: CASE EVENT DATE: 20201228
